FAERS Safety Report 8598387-1 (Version None)
Quarter: 2012Q3

REPORT INFORMATION
  Report Type: 
  Country: None (occurrence: None)
  Receive Date: 20120816
  Receipt Date: 20120807
  Transmission Date: 20120928
  Serious: Yes (Other)
  Sender: FDA-Public Use
  Company Number: US-ASTRAZENECA-2012SE55661

PATIENT
  Age: 60 Year
  Sex: Female
  Weight: 58.1 kg

DRUGS (11)
  1. NEXIUM [Suspect]
     Indication: GASTROOESOPHAGEAL REFLUX DISEASE
     Route: 048
     Dates: start: 20010101
  2. VITAMIN D [Concomitant]
  3. MULTI-VITAMINS [Concomitant]
  4. ALFALIPOIC ACID [Concomitant]
  5. FISH OIL [Concomitant]
  6. L-CARNITINE [Concomitant]
  7. CYMBALTA [Concomitant]
  8. LIPITOR [Concomitant]
  9. MINERAL TAB [Concomitant]
  10. WELLBUTRIN [Concomitant]
  11. VITAMIN B-12 [Concomitant]
     Dosage: 3000 BCG

REACTIONS (3)
  - BREAST CANCER [None]
  - BARRETT'S OESOPHAGUS [None]
  - ABDOMINAL DISCOMFORT [None]
